FAERS Safety Report 26176560 (Version 1)
Quarter: 2025Q4

REPORT INFORMATION
  Report Type: Spontaneous
  Country: EU (occurrence: EU)
  Receive Date: 20251218
  Receipt Date: 20251218
  Transmission Date: 20260117
  Serious: Yes (Hospitalization, Other)
  Sender: ELI LILLY AND COMPANY
  Company Number: EU-EMB-M202002481-1

PATIENT

DRUGS (30)
  1. ATOMOXETINE HYDROCHLORIDE [Suspect]
     Active Substance: ATOMOXETINE HYDROCHLORIDE
     Indication: Attention deficit hyperactivity disorder
     Dosage: 80 MG, DAILY (APPROXIMATELY UNTIL GW 29)
     Route: 064
     Dates: start: 202001, end: 202008
  2. ATOMOXETINE HYDROCHLORIDE [Suspect]
     Active Substance: ATOMOXETINE HYDROCHLORIDE
     Indication: Attention deficit hyperactivity disorder
     Dosage: 80 MG, DAILY (APPROXIMATELY UNTIL GW 29)
     Route: 064
     Dates: start: 202001, end: 202008
  3. NALOXONE HYDROCHLORIDE\OXYCODONE HYDROCHLORIDE [Suspect]
     Active Substance: NALOXONE HYDROCHLORIDE\OXYCODONE HYDROCHLORIDE
     Indication: Spondylolisthesis
     Dosage: UNK UNK, BID
     Route: 064
     Dates: start: 202002, end: 202010
  4. NALOXONE HYDROCHLORIDE\OXYCODONE HYDROCHLORIDE [Suspect]
     Active Substance: NALOXONE HYDROCHLORIDE\OXYCODONE HYDROCHLORIDE
     Indication: Spondylolisthesis
     Dosage: UNK UNK, BID
     Route: 064
     Dates: start: 202002, end: 202010
  5. PALEXIA [Concomitant]
     Active Substance: TAPENTADOL HYDROCHLORIDE
     Indication: Spondylolisthesis
     Dosage: UNK, OTHER
     Route: 064
     Dates: start: 202001, end: 202002
  6. PALEXIA [Concomitant]
     Active Substance: TAPENTADOL HYDROCHLORIDE
     Indication: Spondylolisthesis
     Dosage: UNK, OTHER
     Route: 064
     Dates: start: 202001, end: 202002
  7. PALEXIA [Concomitant]
     Active Substance: TAPENTADOL HYDROCHLORIDE
     Indication: Pain
  8. PALEXIA [Concomitant]
     Active Substance: TAPENTADOL HYDROCHLORIDE
     Indication: Pain
  9. METAMIZOL [Concomitant]
     Active Substance: METAMIZOLE SODIUM
     Indication: Spondylolisthesis
     Dosage: 500 MG, BID (UNTIL GW 5)
     Route: 064
     Dates: start: 202001, end: 202002
  10. METAMIZOL [Concomitant]
     Active Substance: METAMIZOLE SODIUM
     Indication: Spondylolisthesis
     Dosage: 500 MG, BID (UNTIL GW 5)
     Route: 064
     Dates: start: 202001, end: 202002
  11. METAMIZOL [Concomitant]
     Active Substance: METAMIZOLE SODIUM
     Indication: Pain
  12. METAMIZOL [Concomitant]
     Active Substance: METAMIZOLE SODIUM
     Indication: Pain
  13. ARCOXIA [Concomitant]
     Active Substance: ETORICOXIB
     Indication: Spondylolisthesis
     Dosage: 90 MG, DAILY (UNTIL GW 5)
     Route: 064
     Dates: start: 202001, end: 202002
  14. ARCOXIA [Concomitant]
     Active Substance: ETORICOXIB
     Indication: Spondylolisthesis
     Dosage: 90 MG, DAILY (UNTIL GW 5)
     Route: 064
     Dates: start: 202001, end: 202002
  15. ARCOXIA [Concomitant]
     Active Substance: ETORICOXIB
     Indication: Pain
  16. ARCOXIA [Concomitant]
     Active Substance: ETORICOXIB
     Indication: Pain
  17. VAXIGRIPTETRA [Concomitant]
     Active Substance: INFLUENZA VIRUS VACCINE QUADRIVALENT TYPE A+B
     Indication: Immunisation
     Dosage: UNK UNK, DAILY
     Route: 064
     Dates: start: 202009, end: 202009
  18. VAXIGRIPTETRA [Concomitant]
     Active Substance: INFLUENZA VIRUS VACCINE QUADRIVALENT TYPE A+B
     Indication: Immunisation
     Dosage: UNK UNK, DAILY
     Route: 064
     Dates: start: 202009, end: 202009
  19. METHYLPREDNISOLONE ACEPONATE [Concomitant]
     Active Substance: METHYLPREDNISOLONE ACEPONATE
     Indication: Neurodermatitis
     Dosage: UNK UNK, UNKNOWN
     Route: 064
     Dates: start: 202002, end: 202002
  20. METHYLPREDNISOLONE ACEPONATE [Concomitant]
     Active Substance: METHYLPREDNISOLONE ACEPONATE
     Indication: Neurodermatitis
     Dosage: UNK UNK, UNKNOWN
     Route: 064
     Dates: start: 202002, end: 202002
  21. CEFUROXIME AXETIL [Concomitant]
     Active Substance: CEFUROXIME AXETIL
     Indication: Urinary tract infection
     Dosage: 250 MG, BID
     Route: 064
     Dates: start: 202005, end: 202005
  22. CEFUROXIME AXETIL [Concomitant]
     Active Substance: CEFUROXIME AXETIL
     Indication: Urinary tract infection
     Dosage: 250 MG, BID
     Route: 064
     Dates: start: 202005, end: 202005
  23. PREGABALIN [Concomitant]
     Active Substance: PREGABALIN
     Indication: Spondylolisthesis
     Dosage: UNK, UNKNOWN
     Route: 064
     Dates: start: 202001, end: 202002
  24. PREGABALIN [Concomitant]
     Active Substance: PREGABALIN
     Indication: Spondylolisthesis
     Dosage: UNK, UNKNOWN
     Route: 064
     Dates: start: 202001, end: 202002
  25. PREGABALIN [Concomitant]
     Active Substance: PREGABALIN
     Indication: Pain
  26. PREGABALIN [Concomitant]
     Active Substance: PREGABALIN
     Indication: Pain
  27. ASPIRIN [Concomitant]
     Active Substance: ASPIRIN
     Indication: Product used for unknown indication
     Dosage: 150 MG, DAILY (UNKNOWN, HOW LONG IT WAS TAKEN)
     Route: 064
     Dates: start: 202005
  28. ASPIRIN [Concomitant]
     Active Substance: ASPIRIN
     Indication: Product used for unknown indication
     Dosage: 150 MG, DAILY (UNKNOWN, HOW LONG IT WAS TAKEN)
     Route: 064
     Dates: start: 202005
  29. BOOSTRIX [Concomitant]
     Active Substance: TETANUS TOXOID, REDUCED DIPHTHERIA TOXOID AND ACELLULAR PERTUSSIS VACCINE ADSORBED, TDAP
     Indication: Immunisation
     Dosage: UNK, DAILY
     Route: 064
     Dates: start: 202009, end: 202009
  30. BOOSTRIX [Concomitant]
     Active Substance: TETANUS TOXOID, REDUCED DIPHTHERIA TOXOID AND ACELLULAR PERTUSSIS VACCINE ADSORBED, TDAP
     Indication: Immunisation
     Dosage: UNK, DAILY
     Route: 064
     Dates: start: 202009, end: 202009

REACTIONS (3)
  - Social (pragmatic) communication disorder [Not Recovered/Not Resolved]
  - Attention deficit hyperactivity disorder [Not Recovered/Not Resolved]
  - Foetal exposure during pregnancy [Unknown]

NARRATIVE: CASE EVENT DATE: 20250501
